FAERS Safety Report 4809159-5 (Version None)
Quarter: 2005Q4

REPORT INFORMATION
  Report Type: 
  Country: None (occurrence: None)
  Receive Date: 20051021
  Receipt Date: 20030128
  Transmission Date: 20060501
  Serious: Yes (Hospitalization)
  Sender: FDA-Public Use
  Company Number: EWC030233756

PATIENT
  Age: 23 Year
  Sex: Male

DRUGS (4)
  1. ZYPREXA [Suspect]
     Indication: PSYCHOTIC DISORDER
     Dosage: 280 MG/DAY
     Dates: start: 20020101, end: 20030123
  2. VALPROIC ACID [Concomitant]
  3. VALIUM [Concomitant]
  4. CITALOPRAM [Concomitant]

REACTIONS (13)
  - AGITATION [None]
  - ALBUMINURIA [None]
  - ALCOHOL USE [None]
  - BLOOD CREATINE PHOSPHOKINASE INCREASED [None]
  - CONFUSIONAL STATE [None]
  - HYPERPYREXIA [None]
  - HYPERTONIA [None]
  - MUSCLE RIGIDITY [None]
  - OVERDOSE [None]
  - RESTLESSNESS [None]
  - SOMNOLENCE [None]
  - UROBILIN URINE PRESENT [None]
  - WHITE BLOOD CELL COUNT INCREASED [None]
